FAERS Safety Report 13752491 (Version 1)
Quarter: 2017Q3

REPORT INFORMATION
  Report Type: Spontaneous
  Country: CN (occurrence: CN)
  Receive Date: 20170713
  Receipt Date: 20170713
  Transmission Date: 20171127
  Serious: Yes (Death, Life-Threatening)
  Sender: FDA-Public Use
  Company Number: CN-FRESENIUS KABI-FK201705945

PATIENT
  Age: 71 Year
  Sex: Male

DRUGS (4)
  1. METHYLPREDNISOLONE (MANUFACTURER UNKNOWN) [Suspect]
     Active Substance: METHYLPREDNISOLONE
     Indication: ASTHMA
     Route: 050
     Dates: start: 20140115
  2. OSELTAMIVIR [Concomitant]
     Active Substance: OSELTAMIVIR
     Dates: start: 20140120
  3. INTERFERON [Suspect]
     Active Substance: INTERFERON
     Indication: POLYCYTHAEMIA VERA
     Route: 065
  4. HYDROXYUREA. [Concomitant]
     Active Substance: HYDROXYUREA
     Indication: POLYCYTHAEMIA VERA
     Route: 065

REACTIONS (5)
  - Nosocomial infection [Unknown]
  - Multiple organ dysfunction syndrome [Fatal]
  - Avian influenza [Unknown]
  - Acute respiratory distress syndrome [Fatal]
  - H1N1 influenza [Unknown]
